FAERS Safety Report 11687408 (Version 2)
Quarter: 2018Q1

REPORT INFORMATION
  Report Type: Report from Study
  Country: PL (occurrence: PL)
  Receive Date: 20151030
  Receipt Date: 20180329
  Transmission Date: 20180508
  Serious: Yes (Hospitalization, Other)
  Sender: FDA-Public Use
  Company Number: PL-BAXALTA-2014BAX071737

PATIENT
  Age: 4 Year
  Sex: Male
  Weight: 17 kg

DRUGS (44)
  1. NOVOSEVEN [Concomitant]
     Active Substance: COAGULATION FACTOR VIIA RECOMBINANT HUMAN
     Indication: LIMB INJURY
  2. BANEOCIN                           /00037701/ [Concomitant]
     Indication: SOFT TISSUE INFECTION
  3. CEFTRIAXONE. [Concomitant]
     Active Substance: CEFTRIAXONE
     Indication: SKIN ABRASION
  4. CALGEL                             /01385001/ [Concomitant]
     Indication: TOOTHACHE
  5. ALTHAEA SYRUP [Concomitant]
     Indication: VIRAL INFECTION
  6. EMOFIX [Concomitant]
     Indication: EPISTAXIS
  7. MIDAZOLAM [Concomitant]
     Active Substance: MIDAZOLAM HYDROCHLORIDE
     Indication: PREMEDICATION
  8. VAXIGRIP [Concomitant]
     Active Substance: INFLUENZA VIRUS VACCINE
     Indication: PROPHYLAXIS
  9. CEFAZOLIN [Concomitant]
     Active Substance: CEFAZOLIN
     Indication: PROPHYLAXIS
  10. NOVOSEVEN [Concomitant]
     Active Substance: COAGULATION FACTOR VIIA RECOMBINANT HUMAN
     Indication: HAEMORRHAGE
  11. SODIUM BICARBONATE. [Concomitant]
     Active Substance: SODIUM BICARBONATE
     Indication: HAEMARTHROSIS
  12. SOLCOSERYL [Concomitant]
     Active Substance: SOLCOSERYL
     Indication: EPISTAXIS
  13. DEXAPIN [Concomitant]
     Indication: VIRAL INFECTION
  14. STREPSILS                          /00033401/ [Concomitant]
     Indication: VIRAL INFECTION
  15. CEFUROXIME. [Concomitant]
     Active Substance: CEFUROXIME
     Indication: SKIN ABRASION
  16. FACTOR VIII INHIBITOR BYPASSING FRACTION; BAXJECT II NF [Suspect]
     Active Substance: ANTI-INHIBITOR COAGULANT COMPLEX
     Indication: PROPHYLAXIS
     Dosage: 1500 IU, 1X A DAY
     Route: 042
     Dates: start: 20141127, end: 20141127
  17. AESCIN                             /00337201/ [Concomitant]
     Indication: HAEMATOMA
  18. BENZYDAMINE [Concomitant]
     Active Substance: BENZYDAMINE
     Indication: PHARYNGITIS
  19. METAMIZOL                          /06276701/ [Concomitant]
     Active Substance: METAMIZOLE
     Indication: PYREXIA
  20. LIPOMAL                            /00434001/ [Concomitant]
     Indication: RESPIRATORY TRACT INFECTION
  21. SODIUM BICARBONATE. [Concomitant]
     Active Substance: SODIUM BICARBONATE
     Indication: HAEMATOMA
  22. PARACETAMOL [Concomitant]
     Active Substance: ACETAMINOPHEN
     Indication: VIRAL INFECTION
  23. MORPHINE [Concomitant]
     Active Substance: MORPHINE
     Indication: ANALGESIC THERAPY
  24. LASER [Concomitant]
     Active Substance: DEVICE
     Indication: CONTUSION
  25. CEFAZOLINE                         /00288501/ [Concomitant]
     Indication: PROPHYLAXIS
  26. LACIDAR [Concomitant]
     Indication: BRONCHITIS
  27. CHOLINEX [Concomitant]
     Indication: PHARYNGITIS
  28. NOVOSEVEN [Concomitant]
     Active Substance: COAGULATION FACTOR VIIA RECOMBINANT HUMAN
     Indication: HAEMARTHROSIS
  29. XYLOMETAZOL [Concomitant]
     Indication: VIRAL INFECTION
  30. ENALAPRIL [Concomitant]
     Active Substance: ENALAPRIL
     Indication: HYPERTENSION
     Dosage: 2.5MILLIGRAM2X A DAY
     Route: 048
     Dates: start: 201401
  31. BUTAMIRATE [Concomitant]
     Active Substance: BUTAMIRATE
     Indication: UPPER RESPIRATORY TRACT INFECTION
  32. FENSPIRIDE [Concomitant]
     Active Substance: FENSPIRIDE
     Indication: RESPIRATORY TRACT INFECTION
  33. NEOMYCIN                           /00038002/ [Concomitant]
     Indication: CONJUNCTIVITIS
  34. BRONCHOSOL                         /00139502/ [Concomitant]
     Indication: VIRAL INFECTION
  35. LIPOMAL                            /00434001/ [Concomitant]
     Indication: PHARYNGITIS
  36. HEPARIN [Concomitant]
     Active Substance: HEPARIN SODIUM
     Indication: DEVICE RELATED SEPSIS
  37. BIODACIN [Concomitant]
     Active Substance: AMIKACIN
     Indication: CONJUNCTIVITIS
  38. FACTOR VIII INHIBITOR BYPASSING FRACTION; BAXJECT II NF [Suspect]
     Active Substance: ANTI-INHIBITOR COAGULANT COMPLEX
     Indication: FACTOR VIII DEFICIENCY
     Dosage: UNK
     Dates: start: 20141127, end: 20141127
  39. METOPROLOL. [Concomitant]
     Active Substance: METOPROLOL
     Indication: HYPERTENSION
     Dosage: 12.5 MG, 1X A DAY
     Route: 048
     Dates: start: 201401
  40. GENTAMYCIN                         /00047101/ [Concomitant]
     Active Substance: GENTAMICIN
     Indication: DEVICE RELATED SEPSIS
  41. RUTOSIDE [Concomitant]
     Indication: RESPIRATORY TRACT INFECTION
  42. AMBROXOL [Concomitant]
     Active Substance: AMBROXOL
     Indication: BRONCHITIS
  43. ARNICA                             /01006901/ [Concomitant]
     Active Substance: ARNICA MONTANA\HERBALS\HOMEOPATHICS
     Indication: HAEMATOMA
  44. CLOXACILLIN [Concomitant]
     Active Substance: CLOXACILLIN
     Indication: SOFT TISSUE INFECTION

REACTIONS (1)
  - Skin injury [Recovered/Resolved]

NARRATIVE: CASE EVENT DATE: 20141127
